FAERS Safety Report 20855866 (Version 1)
Quarter: 2022Q2

REPORT INFORMATION
  Report Type: Spontaneous
  Country: US (occurrence: None)
  Receive Date: 20220520
  Receipt Date: 20220520
  Transmission Date: 20220721
  Serious: No
  Sender: FDA-Public Use
  Company Number: None

PATIENT
  Sex: Male

DRUGS (1)
  1. LENALIDOMIDE [Suspect]
     Active Substance: LENALIDOMIDE
     Indication: Plasma cell myeloma
     Dosage: FREQUENCY : DAILY;?
     Route: 048
     Dates: start: 202204

REACTIONS (7)
  - Heart rate decreased [None]
  - Asthenia [None]
  - Fatigue [None]
  - Nausea [None]
  - Oedema peripheral [None]
  - Hypertension [None]
  - Blood glucose increased [None]
